FAERS Safety Report 23056700 (Version 1)
Quarter: 2023Q4

REPORT INFORMATION
  Report Type: Spontaneous
  Country: JP (occurrence: JP)
  Receive Date: 20231012
  Receipt Date: 20231012
  Transmission Date: 20240110
  Serious: Yes (Other)
  Sender: FDA-Public Use
  Company Number: JP-MTPC-MTPC2023-0019189

PATIENT
  Sex: Female

DRUGS (4)
  1. EDARAVONE [Suspect]
     Active Substance: EDARAVONE
     Route: 041
  2. EDARAVONE [Suspect]
     Active Substance: EDARAVONE
     Dosage: UNK
     Route: 048
  3. EDARAVONE [Suspect]
     Active Substance: EDARAVONE
     Dosage: UNK
     Route: 048
  4. EDOXABAN TOSYLATE [Concomitant]
     Active Substance: EDOXABAN TOSYLATE
     Dosage: UNK
     Route: 048

REACTIONS (6)
  - Rhabdomyolysis [Unknown]
  - Poor venous access [Unknown]
  - Pain in extremity [Unknown]
  - Myalgia [Unknown]
  - Peripheral swelling [Unknown]
  - Accidental exposure to product [Unknown]

NARRATIVE: CASE EVENT DATE: 20230719
